FAERS Safety Report 4392196-5 (Version None)
Quarter: 2004Q3

REPORT INFORMATION
  Report Type: 
  Country: None (occurrence: None)
  Receive Date: 20040702
  Receipt Date: 20040616
  Transmission Date: 20050211
  Serious: Yes (Other)
  Sender: FDA-Public Use
  Company Number: US-2004-026688

PATIENT
  Age: 36 Year
  Sex: Female
  Weight: 67.1 kg

DRUGS (5)
  1. BETASERON [Suspect]
     Indication: MULTIPLE SCLEROSIS
     Dosage: 8 MIU, EVERY 2D, SUBCUTANEOUS
     Route: 058
     Dates: start: 20040419
  2. WELLBUTRIN SR [Suspect]
     Indication: DEPRESSION
     Dosage: 150 MG, 1X/DAY, ORAL
     Route: 048
     Dates: start: 20040511
  3. PROVIGIL [Suspect]
     Indication: FATIGUE
     Dosage: 100 MG, 1X/DAY, ORAL
     Route: 048
     Dates: start: 20040201, end: 20040609
  4. NEURONTIN [Concomitant]
  5. BACLOFEN [Concomitant]

REACTIONS (7)
  - ANXIETY [None]
  - ARRHYTHMIA [None]
  - BLOOD PRESSURE INCREASED [None]
  - CARDIAC FLUTTER [None]
  - DRUG INTERACTION [None]
  - LIVER FUNCTION TEST ABNORMAL [None]
  - PALPITATIONS [None]
